FAERS Safety Report 7885027-X (Version None)
Quarter: 2011Q4

REPORT INFORMATION
  Report Type: 
  Country: None (occurrence: None)
  Receive Date: 20111102
  Receipt Date: 20100722
  Transmission Date: 20120403
  Serious: No
  Sender: FDA-Public Use
  Company Number: US-BAYER-201029140NA

PATIENT
  Age: 31 Year
  Sex: Female

DRUGS (2)
  1. PREDNISONE [Concomitant]
  2. AVELOX [Suspect]
     Indication: BRONCHITIS CHRONIC
     Dosage: 400 MG, QD
     Dates: start: 20100719, end: 20100719

REACTIONS (1)
  - RASH [None]
